FAERS Safety Report 13343499 (Version 1)
Quarter: 2017Q1

REPORT INFORMATION
  Report Type: Report from Study
  Country: UY (occurrence: UY)
  Receive Date: 20170316
  Receipt Date: 20170316
  Transmission Date: 20170428
  Serious: Yes (Other)
  Sender: FDA-Public Use
  Company Number: UY-REGENERON PHARMACEUTICALS, INC.-2015-12837

PATIENT

DRUGS (1)
  1. EYLEA [Suspect]
     Active Substance: AFLIBERCEPT
     Indication: NEOVASCULAR AGE-RELATED MACULAR DEGENERATION
     Dosage: Q3MON, RECEIVED TOTAL OF 2 DOSES OF EYLEA
     Dates: start: 20140930, end: 20141226

REACTIONS (4)
  - Cataract operation [Unknown]
  - Retinal thickening [Unknown]
  - Drug ineffective [Unknown]
  - Product use issue [Unknown]

NARRATIVE: CASE EVENT DATE: 201610
